FAERS Safety Report 9184461 (Version 1)
Quarter: 2012Q4

REPORT INFORMATION
  Report Type: 
  Country: US (occurrence: US)
  Receive Date: 20121101
  Receipt Date: 20121101
  Transmission Date: 20130627
  Serious: Yes (Other)
  Sender: FDA-Public Use
  Company Number: US-PFIZER INC-2012271339

PATIENT
  Age: 52 Year
  Sex: Male
  Weight: 63.49 kg

DRUGS (1)
  1. ALPRAZOLAM [Suspect]
     Indication: ANXIETY ATTACK
     Dosage: 0.5 mg, as needed
     Route: 048
     Dates: start: 2006

REACTIONS (2)
  - Coeliac disease [Unknown]
  - Anaemia [Unknown]
